FAERS Safety Report 10682569 (Version 1)
Quarter: 2014Q4

REPORT INFORMATION
  Report Type: Spontaneous
  Country: US (occurrence: None)
  Receive Date: 20141209
  Receipt Date: 20141209
  Transmission Date: 20150529
  Serious: Yes (Other)
  Sender: FDA-Public Use
  Company Number: 398101

PATIENT
  Age: 65 Year
  Sex: Male
  Weight: 153.7 kg

DRUGS (2)
  1. NOVOLOG [Suspect]
     Active Substance: INSULIN ASPART
     Indication: TYPE 2 DIABETES MELLITUS
     Dosage: SLIDING SCALE
     Route: 058
     Dates: start: 2013
  2. XANAX [Concomitant]
     Active Substance: ALPRAZOLAM

REACTIONS (3)
  - Blood glucose increased [None]
  - Drug dose omission [None]
  - Intentional product misuse [None]

NARRATIVE: CASE EVENT DATE: 20130918
